FAERS Safety Report 13712934 (Version 1)
Quarter: 2017Q3

REPORT INFORMATION
  Report Type: Spontaneous
  Country: FR (occurrence: FR)
  Receive Date: 20170703
  Receipt Date: 20170703
  Transmission Date: 20171127
  Serious: Yes (Other)
  Sender: FDA-Public Use
  Company Number: FR-AMGEN-FRASP2017100707

PATIENT
  Age: 45 Year
  Sex: Female

DRUGS (3)
  1. TRINORDIOL [Concomitant]
     Active Substance: ETHINYL ESTRADIOL\LEVONORGESTREL
     Dosage: UNK
  2. ENBREL [Suspect]
     Active Substance: ETANERCEPT
     Indication: RHEUMATOID ARTHRITIS
     Dosage: 50 MG, WEEKLY
     Route: 058
     Dates: start: 2012, end: 2017
  3. COVERAM [Concomitant]
     Active Substance: AMLODIPINE\PERINDOPRIL

REACTIONS (4)
  - Pruritus [Recovered/Resolved]
  - Rash vesicular [Recovered/Resolved]
  - Hypersensitivity [Recovered/Resolved]
  - Tongue oedema [Unknown]

NARRATIVE: CASE EVENT DATE: 201704
